FAERS Safety Report 24987648 (Version 1)
Quarter: 2025Q1

REPORT INFORMATION
  Report Type: Spontaneous
  Country: US (occurrence: US)
  Receive Date: 20250219
  Receipt Date: 20250219
  Transmission Date: 20250409
  Serious: Yes (Other)
  Sender: SANOFI AVENTIS
  Company Number: US-SA-2025SA049114

PATIENT
  Sex: Female
  Weight: 79.55 kg

DRUGS (20)
  1. DUPIXENT [Suspect]
     Active Substance: DUPILUMAB
     Indication: Dermatitis atopic
     Dosage: 300 MG, QOW
     Route: 058
  2. ADVIL [Concomitant]
     Active Substance: IBUPROFEN
  3. ALLOPURINOL [Concomitant]
     Active Substance: ALLOPURINOL
  4. ATENOLOL AND CHLORTHALIDONE [Concomitant]
     Active Substance: ATENOLOL\CHLORTHALIDONE
  5. CELEBREX [Concomitant]
     Active Substance: CELECOXIB
  6. DIPHENHYDRAMINE HYDROCHLORIDE [Concomitant]
     Active Substance: DIPHENHYDRAMINE HYDROCHLORIDE
  7. LEFLUNOMIDE [Concomitant]
     Active Substance: LEFLUNOMIDE
  8. SERTRALINE HYDROCHLORIDE [Concomitant]
     Active Substance: SERTRALINE HYDROCHLORIDE
  9. SIMVASTATIN [Concomitant]
     Active Substance: SIMVASTATIN
  10. TYLENOL [Concomitant]
     Active Substance: ACETAMINOPHEN
  11. WAL DRYL [Concomitant]
  12. ZOLOFT [Concomitant]
     Active Substance: SERTRALINE HYDROCHLORIDE
  13. COLCHICINE [Concomitant]
     Active Substance: COLCHICINE
  14. METOPROLOL SUCCINATE [Concomitant]
     Active Substance: METOPROLOL SUCCINATE
  15. FEBUXOSTAT [Concomitant]
     Active Substance: FEBUXOSTAT
  16. CIPROFLOXACIN HYDROCHLORIDE [Concomitant]
     Active Substance: CIPROFLOXACIN HYDROCHLORIDE
  17. VITAMIN D2 [Concomitant]
     Active Substance: ERGOCALCIFEROL
  18. ONDANSETRON [Concomitant]
     Active Substance: ONDANSETRON
  19. ATROPINE\DIPHENOXYLATE [Concomitant]
     Active Substance: ATROPINE\DIPHENOXYLATE
  20. PREDNISONE [Concomitant]
     Active Substance: PREDNISONE

REACTIONS (1)
  - Renal impairment [Unknown]
